FAERS Safety Report 7387433-9 (Version None)
Quarter: 2011Q1

REPORT INFORMATION
  Report Type: 
  Country: None (occurrence: None)
  Receive Date: 20110331
  Receipt Date: 20110329
  Transmission Date: 20110831
  Serious: Yes (Hospitalization)
  Sender: FDA-Public Use
  Company Number: UA-ABBOTT-00P-269-0549964-00

PATIENT
  Sex: Female

DRUGS (1)
  1. LUPRON DEPOT-3 MONTH 11.25 MG [Suspect]
     Indication: BREAST CANCER
     Route: 058
     Dates: start: 19971226, end: 19990926

REACTIONS (1)
  - HYPERTHYROIDISM [None]
